FAERS Safety Report 7819058-2 (Version None)
Quarter: 2011Q4

REPORT INFORMATION
  Report Type: 
  Country: None (occurrence: None)
  Receive Date: 20111012
  Receipt Date: 20110928
  Transmission Date: 20120403
  Serious: Yes (Hospitalization)
  Sender: FDA-Public Use
  Company Number: 1000024473

PATIENT
  Age: 85 Year
  Sex: Male

DRUGS (7)
  1. SENNARIDE (SENNOSIDE A, SENOSIDE B) (SENNOSIDE A, SENNOSIDE B) [Concomitant]
  2. GASCON (DIMETICONE) (DIMETICONE) [Concomitant]
  3. MAGMITT (MAGNESIUM OXIDE) (MAGNESIUM OXIDE) [Concomitant]
  4. MEMANTINE [Suspect]
     Indication: DEMENTIA
     Dosage: 15 MG (15 MG, 1 IN 1 D), ORAL
     Route: 048
     Dates: start: 20110101, end: 20110912
  5. MEMANTINE [Suspect]
     Indication: DEMENTIA
     Dosage: 5 MG (5 MG, 1 IN 1 D), ORAL
     Route: 048
     Dates: start: 20110819, end: 20110101
  6. GASMOTIN (MOSAPRIDE CITRATE) (MOSAPRIDE CITRATE) [Concomitant]
  7. ZOLPIDEM TARTRATE [Suspect]

REACTIONS (4)
  - RHABDOMYOLYSIS [None]
  - URINARY TRACT INFECTION [None]
  - BLOOD CREATINE PHOSPHOKINASE INCREASED [None]
  - CHROMATURIA [None]
